FAERS Safety Report 8728070 (Version 2)
Quarter: 2012Q4

REPORT INFORMATION
  Report Type: 
  Country: DE (occurrence: DE)
  Receive Date: 20120817
  Receipt Date: 20120829
  Transmission Date: 20130627
  Serious: Yes (Life-Threatening, Hospitalization, Congenital Anomaly, Other)
  Sender: FDA-Public Use
  Company Number: DE-RANBAXY-2012RR-59080

PATIENT
  Sex: Male
  Weight: 2 kg

DRUGS (4)
  1. RAMIPRIL [Suspect]
     Dosage: 5 mg/day until week 12-14 only 2.5 mg/day, then elevation to 5 mg/day
     Route: 064
  2. NEBILET [Suspect]
     Dosage: 5 mg/day; 0.-36.3. gestational week
     Route: 064
  3. L-THYROX 50 [Concomitant]
     Dosage: 50 ug/day; 0.-36.3. gestational week
     Route: 064
  4. VITAVERLAN [Concomitant]
     Dosage: 0.4 mg/day; 5.-36.3 gestational week
     Route: 064
     Dates: start: 20110829, end: 20120405

REACTIONS (7)
  - Cranial sutures widening [Unknown]
  - Neonatal anuria [Recovered/Resolved]
  - Renal failure acute [Recovered/Resolved]
  - Renal aplasia [Unknown]
  - Extremity contracture [Not Recovered/Not Resolved]
  - Small for dates baby [Unknown]
  - Maternal drugs affecting foetus [None]
